FAERS Safety Report 5869972-2 (Version None)
Quarter: 2008Q3

REPORT INFORMATION
  Report Type: 
  Country: None (occurrence: None)
  Receive Date: 20080904
  Receipt Date: 20080904
  Transmission Date: 20090109
  Serious: Yes (Hospitalization)
  Sender: FDA-Public Use
  Company Number: PHEH1996US01133

PATIENT
  Sex: Male
  Weight: 66.8 kg

DRUGS (7)
  1. SANDIMMUNE [Suspect]
     Route: 048
     Dates: start: 19951107
  2. PROCARDIA [Concomitant]
  3. BACTRIM [Concomitant]
  4. PEPCID [Concomitant]
  5. PREDNISONE TAB [Concomitant]
  6. MEVACOR [Concomitant]
  7. ZOVIRAX [Concomitant]

REACTIONS (3)
  - ABSCESS [None]
  - BACTERIAL INFECTION [None]
  - CELLULITIS [None]
